FAERS Safety Report 7326382-9 (Version None)
Quarter: 2011Q1

REPORT INFORMATION
  Report Type: 
  Country: None (occurrence: None)
  Receive Date: 20110302
  Receipt Date: 20110216
  Transmission Date: 20110831
  Serious: Yes (Death, Hospitalization, Disabling, Other)
  Sender: FDA-Public Use
  Company Number: US-CELGENEUS-163-21880-10110179

PATIENT
  Sex: Male

DRUGS (5)
  1. GLYBURIDE [Concomitant]
     Dosage: 2.5 MILLIGRAM
     Route: 065
  2. REVLIMID [Suspect]
     Indication: CHRONIC LYMPHOCYTIC LEUKAEMIA
     Dosage: 5 MILLIGRAM
     Route: 048
     Dates: start: 20101009, end: 20101027
  3. LASIX [Concomitant]
     Dosage: 40 MILLIGRAM
     Route: 048
  4. FOSINOPRIL SODIUM [Concomitant]
     Dosage: 10 MILLIGRAM
     Route: 048
  5. SIMVASTATIN [Concomitant]
     Dosage: 20 MILLIGRAM
     Route: 048

REACTIONS (4)
  - ACUTE MYOCARDIAL INFARCTION [None]
  - NEOPLASM MALIGNANT [None]
  - PLATELET COUNT DECREASED [None]
  - HYPOGLYCAEMIA [None]
